FAERS Safety Report 9475760 (Version 1)
Quarter: 2013Q3

REPORT INFORMATION
  Report Type: Spontaneous
  Country: US (occurrence: US)
  Receive Date: 20130826
  Receipt Date: 20130826
  Transmission Date: 20140515
  Serious: No
  Sender: FDA-Public Use
  Company Number: US-PFIZER INC-2013242494

PATIENT
  Sex: Male

DRUGS (2)
  1. SUTENT [Suspect]
     Indication: SOFT TISSUE CANCER
     Dosage: 50 MG, 1X/DAY (DAILY)
     Dates: start: 20130613
  2. SUTENT [Suspect]
     Dosage: 37.5 MG (12.5 MG X 3 CAPS), 1X/DAY (DAILY)
     Route: 048

REACTIONS (2)
  - Fatigue [Unknown]
  - Off label use [Unknown]
